FAERS Safety Report 23448092 (Version 2)
Quarter: 2024Q1

REPORT INFORMATION
  Report Type: Spontaneous
  Country: US (occurrence: US)
  Receive Date: 20240126
  Receipt Date: 20240308
  Transmission Date: 20240409
  Serious: Yes (Other)
  Sender: FDA-Public Use
  Company Number: US-PFIZER INC-202400024727

PATIENT
  Age: 74 Year
  Sex: Female
  Weight: 66.68 kg

DRUGS (3)
  1. PAXLOVID [Suspect]
     Active Substance: NIRMATRELVIR\RITONAVIR
     Indication: COVID-19 treatment
     Dosage: [NIRMATRELVIR 150 MG]/[RITONAVIR 100 MG]; 2X/DAY
     Dates: start: 20240125, end: 20240129
  2. METHYLPREDNISOLONE [Concomitant]
     Active Substance: METHYLPREDNISOLONE
     Indication: Wheezing
     Dosage: 8 MG
     Dates: start: 20240125, end: 20240130
  3. ARNUITY ELLIPTA [Concomitant]
     Active Substance: FLUTICASONE FUROATE
     Dosage: TAKE EACH MORNING
     Dates: start: 2016

REACTIONS (15)
  - Diarrhoea haemorrhagic [Unknown]
  - Haemorrhoids [Unknown]
  - Headache [Unknown]
  - Dysgeusia [Unknown]
  - Chills [Unknown]
  - Tremor [Unknown]
  - Fatigue [Unknown]
  - Body temperature fluctuation [Unknown]
  - Polyuria [Unknown]
  - Decreased appetite [Unknown]
  - Weight decreased [Unknown]
  - Arthralgia [Unknown]
  - Asthenia [Unknown]
  - Dyspnoea [Unknown]
  - Pulmonary pain [Unknown]

NARRATIVE: CASE EVENT DATE: 20240125
